FAERS Safety Report 8695579 (Version 3)
Quarter: 2013Q3

REPORT INFORMATION
  Report Type: Spontaneous
  Country: JP (occurrence: None)
  Receive Date: 20120713
  Receipt Date: 20130724
  Transmission Date: 20140515
  Serious: Yes (Death, Life-Threatening, Hospitalization)
  Sender: FDA-Public Use
  Company Number: TCI2012A03487

PATIENT
  Age: 74 Year
  Sex: Male

DRUGS (5)
  1. ACTOS [Suspect]
     Indication: TYPE 2 DIABETES MELLITUS
     Dosage: 15 MG (15 MG, 1 D), PER ORAL
     Route: 048
     Dates: start: 20080527
  2. UNSPECIFIED INGREDIENT [Concomitant]
  3. DIURETICS [Concomitant]
  4. CALCIUM CHANNEL BLOCKERS [Concomitant]
  5. ANGIOTENSIN II ANTAGONISTS [Concomitant]

REACTIONS (4)
  - Plasma cell myeloma [None]
  - Blood creatinine increased [None]
  - Blood calcium increased [None]
  - Blood uric acid increased [None]
